FAERS Safety Report 14203503 (Version 1)
Quarter: 2017Q4

REPORT INFORMATION
  Report Type: Spontaneous
  Country: FR (occurrence: FR)
  Receive Date: 20171120
  Receipt Date: 20171120
  Transmission Date: 20180321
  Serious: Yes (Other)
  Sender: FDA-Public Use
  Company Number: FR-MERCK KGAA-2034616

PATIENT
  Age: 40 Year
  Sex: Female

DRUGS (2)
  1. NOVOTHYROX [Suspect]
     Active Substance: LEVOTHYROXINE SODIUM
     Route: 048
     Dates: start: 20170328
  2. NOVOTHYROX [Suspect]
     Active Substance: LEVOTHYROXINE SODIUM
     Indication: HYPOTHYROIDISM
     Route: 048
     Dates: start: 20170328

REACTIONS (14)
  - Palpitations [None]
  - Dysphagia [None]
  - Breast pain [None]
  - Chest pain [None]
  - Malaise [None]
  - Weight increased [None]
  - Abdominal pain upper [None]
  - Vertigo [None]
  - Toothache [None]
  - Diffuse alopecia [None]
  - Arthralgia [None]
  - Blood thyroid stimulating hormone normal [None]
  - Fatigue [None]
  - Nervousness [None]

NARRATIVE: CASE EVENT DATE: 2017
